FAERS Safety Report 9676537 (Version 2)
Quarter: 2013Q4

REPORT INFORMATION
  Report Type: Report from Study
  Country: JP (occurrence: JP)
  Receive Date: 20131107
  Receipt Date: 20131223
  Transmission Date: 20140711
  Serious: Yes (Hospitalization)
  Sender: FDA-Public Use
  Company Number: JP-ROCHE-1298404

PATIENT
  Age: 82 Year
  Sex: Male
  Weight: 54 kg

DRUGS (11)
  1. METHOXY POLYETHYLENE GLYCOL-EPOETIN BETA [Suspect]
     Indication: NEPHROGENIC ANAEMIA
     Route: 058
     Dates: start: 20120104, end: 20121112
  2. METHOXY POLYETHYLENE GLYCOL-EPOETIN BETA [Suspect]
     Indication: NEPHROGENIC ANAEMIA
     Route: 058
     Dates: start: 20121210
  3. PARIET [Concomitant]
     Indication: PROPHYLAXIS
     Route: 048
  4. ALLEGRA [Concomitant]
     Indication: PROPHYLAXIS
     Route: 048
     Dates: start: 20110606
  5. MAGMITT [Concomitant]
     Indication: PROPHYLAXIS
     Route: 048
     Dates: start: 20120514
  6. FEBURIC [Concomitant]
     Indication: PROPHYLAXIS
     Route: 048
     Dates: start: 20130118
  7. LASIX [Concomitant]
     Indication: PROPHYLAXIS
     Route: 048
  8. ALFAROL [Concomitant]
     Indication: PROPHYLAXIS
     Route: 048
     Dates: start: 20110523
  9. MUCODYNE [Concomitant]
     Indication: PROPHYLAXIS
     Route: 048
     Dates: start: 20110620
  10. HARNAL [Concomitant]
     Indication: PROPHYLAXIS
     Dosage: EVERY OTHER DAY
     Route: 048
     Dates: start: 20111028
  11. HIRUDOID (JAPAN) [Concomitant]
     Indication: PROPHYLAXIS
     Route: 062
     Dates: start: 20120924

REACTIONS (1)
  - Peritonitis [Recovered/Resolved]
